FAERS Safety Report 8352653-3 (Version None)
Quarter: 2012Q2

REPORT INFORMATION
  Report Type: 
  Country: None (occurrence: None)
  Receive Date: 20120509
  Receipt Date: 20120426
  Transmission Date: 20120825
  Serious: Yes (Death, Hospitalization)
  Sender: FDA-Public Use
  Company Number: IMP_05871_2012

PATIENT
  Age: 37 Year
  Sex: Female

DRUGS (1)
  1. DIVALPROEX SODIUM [Suspect]
     Indication: CONVULSION
     Dosage: (DF), (500 MG BID)

REACTIONS (4)
  - HEPATIC FAILURE [None]
  - TONSILLAR HAEMORRHAGE [None]
  - BRAIN OEDEMA [None]
  - BRAIN HERNIATION [None]
